FAERS Safety Report 17435229 (Version 1)
Quarter: 2020Q1

REPORT INFORMATION
  Report Type: Spontaneous
  Country: GR (occurrence: GR)
  Receive Date: 20200219
  Receipt Date: 20200219
  Transmission Date: 20200409
  Serious: Yes (Other)
  Sender: FDA-Public Use
  Company Number: GR-JNJFOC-20191112150

PATIENT
  Age: 73 Year
  Sex: Male

DRUGS (6)
  1. COLISTINE [Concomitant]
     Active Substance: COLISTIN
     Dosage: UNK
  2. SALOSPIR [Concomitant]
     Active Substance: ASPIRIN
     Dosage: UNK
  3. LOPRESOR [Concomitant]
     Active Substance: METOPROLOL
     Dosage: UNK
  4. RIVAROXABAN [Suspect]
     Active Substance: RIVAROXABAN
     Indication: ATRIAL FIBRILLATION
     Dosage: 15 MG, QD
     Route: 048
     Dates: start: 201901, end: 201910
  5. NORDEX [Concomitant]
     Dosage: UNK
  6. DALZAD [Concomitant]
     Active Substance: VALSARTAN
     Dosage: UNK

REACTIONS (3)
  - Haematuria [Recovered/Resolved]
  - Haematuria [Recovered/Resolved]
  - Prostate cancer [Unknown]

NARRATIVE: CASE EVENT DATE: 2019
